FAERS Safety Report 25808676 (Version 5)
Quarter: 2025Q4

REPORT INFORMATION
  Report Type: Report from Study
  Country: BR (occurrence: BR)
  Receive Date: 20250916
  Receipt Date: 20251118
  Transmission Date: 20260118
  Serious: Yes (Death, Hospitalization, Other)
  Sender: GILEAD
  Company Number: BR-GILEAD-2025-0721314

PATIENT
  Age: 41 Year
  Sex: Female

DRUGS (1)
  1. AXICABTAGENE CILOLEUCEL [Suspect]
     Active Substance: AXICABTAGENE CILOLEUCEL
     Indication: Primary mediastinal large B-cell lymphoma
     Dosage: UNK
     Route: 042
     Dates: start: 20250901, end: 20250901

REACTIONS (8)
  - Brain oedema [Fatal]
  - Cytokine release syndrome [Fatal]
  - Neurotoxicity [Fatal]
  - Immune effector cell-associated neurotoxicity syndrome [Recovering/Resolving]
  - Febrile neutropenia [Unknown]
  - Pyrexia [Recovering/Resolving]
  - Hypotension [Recovering/Resolving]
  - Haemodynamic instability [Unknown]

NARRATIVE: CASE EVENT DATE: 20250904
